FAERS Safety Report 10275027 (Version 1)
Quarter: 2014Q3

REPORT INFORMATION
  Report Type: Spontaneous
  Country: US (occurrence: US)
  Receive Date: 20140703
  Receipt Date: 20140703
  Transmission Date: 20150326
  Serious: No
  Sender: FDA-Public Use
  Company Number: US-AMGEN-USASP2014048904

PATIENT
  Age: 8 Year
  Sex: Female

DRUGS (1)
  1. ENBREL [Suspect]
     Active Substance: ETANERCEPT
     Indication: JUVENILE IDIOPATHIC ARTHRITIS
     Dosage: DOSAGE BY WEIGHT, QWK
     Route: 065
     Dates: start: 20140404, end: 20140621

REACTIONS (2)
  - Vomiting [Unknown]
  - Full blood count increased [Unknown]

NARRATIVE: CASE EVENT DATE: 20140621
